FAERS Safety Report 25479328 (Version 2)
Quarter: 2025Q3

REPORT INFORMATION
  Report Type: Spontaneous
  Country: EU (occurrence: EU)
  Receive Date: 20250625
  Receipt Date: 20250920
  Transmission Date: 20251021
  Serious: Yes (Life-Threatening, Hospitalization, Other)
  Sender: BRISTOL-MYERS SQUIBB COMPANY
  Company Number: EU-BRISTOL-MYERS SQUIBB COMPANY-2025-088639

PATIENT
  Age: 78 Year
  Sex: Female

DRUGS (5)
  1. NIVOLUMAB [Suspect]
     Active Substance: NIVOLUMAB
     Indication: Malignant melanoma
  2. NIVOLUMAB [Suspect]
     Active Substance: NIVOLUMAB
  3. NIVOLUMAB [Suspect]
     Active Substance: NIVOLUMAB
  4. NELVUTAMIG [Suspect]
     Active Substance: NELVUTAMIG
     Indication: Malignant melanoma
  5. NELVUTAMIG [Suspect]
     Active Substance: NELVUTAMIG

REACTIONS (8)
  - Fatigue [Recovering/Resolving]
  - Dizziness [Recovering/Resolving]
  - Asthenia [Recovering/Resolving]
  - Immune-mediated hepatitis [Unknown]
  - Hepatomegaly [Unknown]
  - Cholecystitis acute [Unknown]
  - Hepatic failure [Unknown]
  - Hypophysitis [Unknown]

NARRATIVE: CASE EVENT DATE: 20250601
